FAERS Safety Report 21914503 (Version 2)
Quarter: 2023Q1

REPORT INFORMATION
  Report Type: Other
  Country: ZA (occurrence: None)
  Receive Date: 20230126
  Receipt Date: 20230201
  Transmission Date: 20230418
  Serious: Yes (Hospitalization)
  Sender: FDA-Public Use
  Company Number: ZA-ROCHE-3271569

PATIENT
  Sex: Female

DRUGS (1)
  1. ACTEMRA [Suspect]
     Active Substance: TOCILIZUMAB
     Indication: Rheumatoid arthritis
     Route: 058

REACTIONS (6)
  - Malaise [Unknown]
  - Tibia fracture [Unknown]
  - Fibula fracture [Unknown]
  - Pneumonia [Unknown]
  - Abscess intestinal [Unknown]
  - Asthenia [Unknown]
